FAERS Safety Report 25512763 (Version 2)
Quarter: 2025Q3

REPORT INFORMATION
  Report Type: Spontaneous
  Country: JP (occurrence: JP)
  Receive Date: 20250703
  Receipt Date: 20250718
  Transmission Date: 20251020
  Serious: Yes (Hospitalization)
  Sender: PFIZER
  Company Number: JP-MLMSERVICE-20250620-PI549355-00206-1

PATIENT
  Age: 77 Year
  Sex: Female

DRUGS (7)
  1. LORAZEPAM [Suspect]
     Active Substance: LORAZEPAM
     Route: 048
  2. LORAZEPAM [Suspect]
     Active Substance: LORAZEPAM
     Route: 048
  3. NITRAZEPAM [Suspect]
     Active Substance: NITRAZEPAM
     Route: 048
  4. NITRAZEPAM [Suspect]
     Active Substance: NITRAZEPAM
  5. OLANZAPINE [Concomitant]
     Active Substance: OLANZAPINE
  6. LEMBOREXANT [Concomitant]
     Active Substance: LEMBOREXANT
  7. PIPERACILLIN SODIUM\TAZOBACTAM SODIUM [Concomitant]
     Active Substance: PIPERACILLIN SODIUM\TAZOBACTAM SODIUM
     Indication: Pneumonia aspiration
     Dosage: 13.5 G, 1X/DAY

REACTIONS (2)
  - Drug withdrawal syndrome [Recovered/Resolved]
  - Status epilepticus [Recovered/Resolved]
